FAERS Safety Report 8202141-X (Version None)
Quarter: 2012Q1

REPORT INFORMATION
  Report Type: 
  Country: None (occurrence: None)
  Receive Date: 20120308
  Receipt Date: 20120222
  Transmission Date: 20120608
  Serious: Yes (Hospitalization)
  Sender: FDA-Public Use
  Company Number: JPI-P-019968

PATIENT
  Sex: Male

DRUGS (4)
  1. XYREM [Suspect]
     Indication: CATAPLEXY
     Dosage: ORAL ; ORAL
     Route: 048
     Dates: start: 20110101, end: 20120201
  2. XYREM [Suspect]
     Indication: CATAPLEXY
     Dosage: ORAL ; ORAL
     Route: 048
     Dates: start: 20120201
  3. SERTRALINE HYDROCHLORIDE [Suspect]
     Indication: CATAPLEXY
     Dosage: ORAL ; ORAL
     Route: 048
     Dates: end: 20120201
  4. SERTRALINE HYDROCHLORIDE [Suspect]
     Indication: CATAPLEXY
     Dosage: ORAL ; ORAL
     Route: 048
     Dates: start: 20120201

REACTIONS (2)
  - CATAPLEXY [None]
  - CEREBROVASCULAR ACCIDENT [None]
